FAERS Safety Report 9841675 (Version 1)
Quarter: 2013Q4

REPORT INFORMATION
  Report Type: Spontaneous
  Country: US (occurrence: None)
  Receive Date: 20131219
  Receipt Date: 20131219
  Transmission Date: 20140711
  Serious: Yes (Disabling)
  Sender: FDA-Public Use
  Company Number: 163-20785-12113718

PATIENT
  Age: 74 Year
  Sex: Female

DRUGS (10)
  1. THALOMID [Suspect]
     Indication: PLASMA CELL MYELOMA
     Route: 048
     Dates: start: 20121005
  2. ZOMETA (ZOLEDRONIC ACID) [Concomitant]
  3. HYDROCHLOROTHIAZIDE (HYDROCHLOROTHIAZIDE) [Concomitant]
  4. TRAMADOL (TRAMADOL) [Concomitant]
  5. VITAMIN B12 (CYANOCOBALMIN) [Concomitant]
  6. BIOTIN (BIOTIN) [Concomitant]
  7. ASPIRIN (ACETYLSALICYLIC ACID) [Concomitant]
  8. DIFLUCAN (FLUCONAZOLE) [Concomitant]
  9. NEXIUM (ESOMEPRAZOLE) [Concomitant]
  10. VALTREX (VALACICLOVIR HYDROCHLORIDE) [Concomitant]

REACTIONS (2)
  - Burning sensation [None]
  - Pain in extremity [None]
